FAERS Safety Report 6016631-1 (Version None)
Quarter: 2008Q4

REPORT INFORMATION
  Report Type: 
  Country: None (occurrence: None)
  Receive Date: 20081222
  Receipt Date: 20081216
  Transmission Date: 20090506
  Serious: Yes (Other)
  Sender: FDA-Public Use
  Company Number: PHBS2008ZA06703

PATIENT
  Age: 50 Year
  Sex: Male

DRUGS (6)
  1. CYCLOSPORINE [Suspect]
     Indication: STEM CELL TRANSPLANT
  2. ALEMTUZUMAB [Concomitant]
     Indication: PROPHYLAXIS AGAINST GRAFT VERSUS HOST DISEASE
     Dosage: 10 MG/DAY
  3. FLUDARABINE PHOSPHATE [Concomitant]
     Dosage: 30 MG/M2/D
  4. CYCLOPHOSPHAMIDE [Concomitant]
     Dosage: 60 MG/KG/D
  5. ALLOPURINOL [Concomitant]
  6. UROMIXETAN [Concomitant]
     Dosage: 60 MG/KG

REACTIONS (3)
  - BK VIRUS INFECTION [None]
  - CYSTITIS HAEMORRHAGIC [None]
  - CYTOMEGALOVIRUS INFECTION [None]
